FAERS Safety Report 20771789 (Version 1)
Quarter: 2022Q2

REPORT INFORMATION
  Report Type: Spontaneous
  Country: US (occurrence: US)
  Receive Date: 20220430
  Receipt Date: 20220430
  Transmission Date: 20220721
  Serious: No
  Sender: FDA-Public Use
  Company Number: US-drreddys-SPO/USA/22/0148801

PATIENT
  Age: 77 Year
  Sex: Male
  Weight: 84.82 kg

DRUGS (8)
  1. NAPROXEN [Interacting]
     Active Substance: NAPROXEN
     Indication: Product used for unknown indication
  2. NAPROXEN [Interacting]
     Active Substance: NAPROXEN
  3. ELIQUIS [Interacting]
     Active Substance: APIXABAN
     Indication: Anticoagulant therapy
     Route: 048
  4. HYDROCHLOROTHIAZIDE [Concomitant]
     Active Substance: HYDROCHLOROTHIAZIDE
     Indication: Heart rate irregular
     Route: 048
  5. METOPROLOL SUCCINATE [Concomitant]
     Active Substance: METOPROLOL SUCCINATE
     Indication: Product used for unknown indication
     Route: 048
  6. ATORVASTATIN [Concomitant]
     Active Substance: ATORVASTATIN
     Indication: Product used for unknown indication
     Route: 048
  7. AMLODIPINE BESYLATE [Concomitant]
     Active Substance: AMLODIPINE BESYLATE
     Indication: Product used for unknown indication
     Route: 048
  8. ENALAPRIL [Concomitant]
     Active Substance: ENALAPRIL
     Indication: Product used for unknown indication
     Route: 048
     Dates: start: 2007

REACTIONS (3)
  - Drug interaction [Unknown]
  - Product administration error [Unknown]
  - Wrong patient received product [Unknown]
